FAERS Safety Report 9639087 (Version 1)
Quarter: 2013Q4

REPORT INFORMATION
  Report Type: Spontaneous
  Country: SE (occurrence: SE)
  Receive Date: 20131022
  Receipt Date: 20131022
  Transmission Date: 20140711
  Serious: Yes (Death, Other)
  Sender: FDA-Public Use
  Company Number: SE-UCBSA-100407

PATIENT
  Age: 55 Year
  Sex: Female

DRUGS (2)
  1. KEPPRA [Suspect]
     Indication: STATUS EPILEPTICUS
  2. NO CONCOMITANT MEDICATION [Concomitant]

REACTIONS (2)
  - Death [Fatal]
  - Stevens-Johnson syndrome [Unknown]
